FAERS Safety Report 15906308 (Version 3)
Quarter: 2019Q3

REPORT INFORMATION
  Report Type: Report from Study
  Country: US (occurrence: US)
  Receive Date: 20190204
  Receipt Date: 20190802
  Transmission Date: 20191004
  Serious: Yes (Other)
  Sender: FDA-Public Use
  Company Number: US-SA-2018SA159515

PATIENT
  Age: 47 Year
  Sex: Female

DRUGS (3)
  1. ALEMTUZUMAB [Suspect]
     Active Substance: ALEMTUZUMAB
     Indication: MULTIPLE SCLEROSIS
     Dosage: 12 MG, QD
     Route: 041
     Dates: start: 20170619, end: 20170621
  2. PYRIDIUM [Suspect]
     Active Substance: PHENAZOPYRIDINE
     Indication: BLADDER SPASM
     Route: 065
  3. ALEMTUZUMAB [Suspect]
     Active Substance: ALEMTUZUMAB
     Dosage: 12 MG,QD
     Route: 041
     Dates: start: 20160523, end: 20160527

REACTIONS (25)
  - Herpes zoster [Not Recovered/Not Resolved]
  - Pain [Not Recovered/Not Resolved]
  - Fatigue [Not Recovered/Not Resolved]
  - Migraine-triggered seizure [Not Recovered/Not Resolved]
  - Memory impairment [Not Recovered/Not Resolved]
  - Thyroid disorder [Unknown]
  - Fall [Unknown]
  - Condition aggravated [Unknown]
  - Sinusitis [Not Recovered/Not Resolved]
  - Neuropathy peripheral [Not Recovered/Not Resolved]
  - Asthenia [Not Recovered/Not Resolved]
  - Hypothyroidism [Unknown]
  - Migraine [Not Recovered/Not Resolved]
  - Drug hypersensitivity [Unknown]
  - Candida infection [Not Recovered/Not Resolved]
  - Vertigo [Unknown]
  - Rash pustular [Not Recovered/Not Resolved]
  - Vestibular migraine [Not Recovered/Not Resolved]
  - Visual impairment [Not Recovered/Not Resolved]
  - Bladder spasm [Unknown]
  - Multiple sclerosis relapse [Not Recovered/Not Resolved]
  - Thyroid function test abnormal [Unknown]
  - Vertigo [Not Recovered/Not Resolved]
  - Laboratory test abnormal [Unknown]
  - Hypoacusis [Not Recovered/Not Resolved]

NARRATIVE: CASE EVENT DATE: 2017
